FAERS Safety Report 23586287 (Version 4)
Quarter: 2024Q2

REPORT INFORMATION
  Report Type: Spontaneous
  Country: FR (occurrence: None)
  Receive Date: 20240301
  Receipt Date: 20240408
  Transmission Date: 20240716
  Serious: Yes (Life-Threatening, Other)
  Sender: FDA-Public Use
  Company Number: 2024A050183

PATIENT
  Age: 69 Year
  Sex: Male

DRUGS (1)
  1. TEZEPELUMAB [Suspect]
     Active Substance: TEZEPELUMAB
     Route: 058

REACTIONS (3)
  - Respiratory distress [Recovering/Resolving]
  - Pulmonary toxicity [Unknown]
  - Headache [Unknown]
